FAERS Safety Report 24947887 (Version 1)
Quarter: 2025Q1

REPORT INFORMATION
  Report Type: Report from Study
  Country: US (occurrence: US)
  Receive Date: 20250210
  Receipt Date: 20250210
  Transmission Date: 20250409
  Serious: Yes (Hospitalization)
  Sender: ABBVIE
  Company Number: US-ABBVIE-6122739

PATIENT
  Age: 22 Year
  Sex: Female

DRUGS (1)
  1. SKYRIZI [Suspect]
     Active Substance: RISANKIZUMAB-RZAA
     Indication: Colitis ulcerative
     Route: 058
     Dates: start: 20240904

REACTIONS (5)
  - Vomiting [Recovered/Resolved]
  - Diarrhoea haemorrhagic [Recovered/Resolved]
  - Blood potassium decreased [Unknown]
  - Crohn^s disease [Unknown]
  - Asthenia [Unknown]
